FAERS Safety Report 14270750 (Version 3)
Quarter: 2019Q1

REPORT INFORMATION
  Report Type: Spontaneous
  Country: US (occurrence: US)
  Receive Date: 20171211
  Receipt Date: 20190122
  Transmission Date: 20190417
  Serious: Yes (Hospitalization, Other)
  Sender: FDA-Public Use
  Company Number: US-OTSUKA-14641294

PATIENT
  Age: 34 Year
  Sex: Female
  Weight: 61.22 kg

DRUGS (6)
  1. WELLBUTRIN [Suspect]
     Active Substance: BUPROPION HYDROCHLORIDE
     Indication: PRODUCT USED FOR UNKNOWN INDICATION
     Dosage: 75 MG, UNK
     Route: 065
     Dates: end: 20090416
  2. ABILIFY [Suspect]
     Active Substance: ARIPIPRAZOLE
     Indication: MOOD SWINGS
     Dosage: 5 MG, UNK
     Route: 065
     Dates: start: 20090312
  3. ABILIFY [Suspect]
     Active Substance: ARIPIPRAZOLE
     Indication: DEPRESSION
  4. ABILIFY [Suspect]
     Active Substance: ARIPIPRAZOLE
     Indication: IRRITABILITY
     Dosage: 10 MG, QD
     Route: 065
     Dates: start: 20090418
  5. ABILIFY [Suspect]
     Active Substance: ARIPIPRAZOLE
     Indication: BIPOLAR I DISORDER
     Dosage: 2 MG, QD
     Route: 048
     Dates: start: 20090312
  6. ALPRAZOLAM. [Suspect]
     Active Substance: ALPRAZOLAM
     Indication: ANXIETY
     Dosage: ON 18-APR-2009 - 30 TO 45 TABLETS WAS TAKEN.   0.5MG/D RECEIVED ONLY OCCASIONALLY
     Route: 065
     Dates: start: 20090418

REACTIONS (3)
  - Suicide attempt [Unknown]
  - Aggression [Recovering/Resolving]
  - Consciousness fluctuating [Unknown]

NARRATIVE: CASE EVENT DATE: 200904
